FAERS Safety Report 8561215-4 (Version None)
Quarter: 2012Q3

REPORT INFORMATION
  Report Type: 
  Country: None (occurrence: None)
  Receive Date: 20120802
  Receipt Date: 20120724
  Transmission Date: 20120928
  Serious: Yes (Other)
  Sender: FDA-Public Use
  Company Number: CO-JNJFOC-20120713722

PATIENT
  Age: 60 Year
  Sex: Female

DRUGS (4)
  1. AZATHIOPRINE [Concomitant]
     Route: 048
  2. FOLIC ACID [Concomitant]
     Route: 048
  3. REMICADE [Suspect]
     Indication: CROHN'S DISEASE
     Route: 042
     Dates: start: 20060301
  4. MESALAMINE [Concomitant]
     Route: 048

REACTIONS (1)
  - ATRIAL TACHYCARDIA [None]
